FAERS Safety Report 13648416 (Version 1)
Quarter: 2017Q2

REPORT INFORMATION
  Report Type: Spontaneous
  Country: US (occurrence: US)
  Receive Date: 20170613
  Receipt Date: 20170613
  Transmission Date: 20170830
  Serious: No
  Sender: FDA-Public Use
  Company Number: US-ADAPT PHARMA-2017ADP00009

PATIENT
  Age: 50 Year
  Sex: Male
  Weight: 77.98 kg

DRUGS (11)
  1. NALOXONE HYDROCHLORIDE. [Suspect]
     Active Substance: NALOXONE HYDROCHLORIDE
     Indication: OVERDOSE
     Dosage: 8 MG, UNK
     Route: 045
     Dates: start: 20170308, end: 20170308
  2. BACLOFEN. [Concomitant]
     Active Substance: BACLOFEN
     Dosage: 20 MG, 3X/DAY
  3. METAMUCIL [Concomitant]
     Active Substance: PLANTAGO SEED
     Dosage: 3.4 G, 1X/DAY
  4. TRAZODONE [Concomitant]
     Active Substance: TRAZODONE HYDROCHLORIDE
     Dosage: 25 MG, 1X/DAY
  5. MIRALAX [Concomitant]
     Active Substance: POLYETHYLENE GLYCOL 3350
     Dosage: 17 G, 1X/DAY
  6. COCAINE [Suspect]
     Active Substance: COCAINE
     Dosage: UNK, UNK
     Route: 065
     Dates: start: 20170306
  7. DIAZEPAM. [Suspect]
     Active Substance: DIAZEPAM
     Dosage: 5 MG, 3X/DAY AS NEEDED
     Route: 065
  8. DULOXETINE. [Concomitant]
     Active Substance: DULOXETINE
     Dosage: 120 MG, 1X/DAY
  9. HEROIN [Suspect]
     Active Substance: DIAMORPHINE
     Dosage: UNK, UNK
     Route: 051
     Dates: start: 20170308
  10. ALCOHOL. [Suspect]
     Active Substance: ALCOHOL
     Dosage: UNK, UNK
     Route: 065
  11. IBUPROFEN. [Concomitant]
     Active Substance: IBUPROFEN
     Dosage: 600 MG, 3X/DAY AS NEEDED

REACTIONS (2)
  - Drug administration error [Recovered/Resolved]
  - Drug screen negative [Unknown]

NARRATIVE: CASE EVENT DATE: 20170308
